FAERS Safety Report 4453606-8 (Version None)
Quarter: 2004Q3

REPORT INFORMATION
  Report Type: 
  Country: None (occurrence: None)
  Receive Date: 20040902
  Receipt Date: 20040522
  Transmission Date: 20050211
  Serious: No
  Sender: FDA-Public Use
  Company Number: 200417978BWH

PATIENT
  Age: 41 Year
  Sex: Male
  Weight: 77.1115 kg

DRUGS (9)
  1. LEVITRA [Suspect]
     Indication: ERECTILE DYSFUNCTION
     Dosage: 5 MG, ONCE, ORAL
     Route: 048
     Dates: start: 20040520
  2. KALETRA [Suspect]
     Dosage: 399.9 MG, BID, ORAL
     Route: 047
  3. RANITIDINE [Concomitant]
  4. SULFAMETHOXAZOLE + TRIMETHOPRIM [Concomitant]
  5. ACYCLOVIR [Concomitant]
  6. VIDEX [Concomitant]
  7. VIREAD [Concomitant]
  8. TRAZODONE HCL [Concomitant]
  9. DICLOFENAC [Concomitant]

REACTIONS (2)
  - HEADACHE [None]
  - SPONTANEOUS PENILE ERECTION [None]
